FAERS Safety Report 20967862 (Version 2)
Quarter: 2023Q2

REPORT INFORMATION
  Report Type: Report from Study
  Country: US (occurrence: US)
  Receive Date: 20220616
  Receipt Date: 20230515
  Transmission Date: 20230721
  Serious: Yes (Other)
  Sender: FDA-Public Use
  Company Number: US-ABBVIE-22K-163-4403935-00

PATIENT
  Sex: Female

DRUGS (1)
  1. IMBRUVICA [Suspect]
     Active Substance: IBRUTINIB
     Indication: Chronic lymphocytic leukaemia
     Route: 048
     Dates: start: 20210508, end: 202304

REACTIONS (11)
  - Postoperative wound infection [Unknown]
  - Oedema peripheral [Unknown]
  - Cytokine storm [Unknown]
  - Back pain [Unknown]
  - Malignant melanoma [Unknown]
  - Anxiety [Unknown]
  - Joint swelling [Unknown]
  - Musculoskeletal chest pain [Unknown]
  - Headache [Unknown]
  - Fatigue [Unknown]
  - Arthralgia [Unknown]

NARRATIVE: CASE EVENT DATE: 20220101
